FAERS Safety Report 16247266 (Version 1)
Quarter: 2019Q2

REPORT INFORMATION
  Report Type: Spontaneous
  Country: US (occurrence: US)
  Receive Date: 20190427
  Receipt Date: 20190427
  Transmission Date: 20190711
  Serious: No
  Sender: FDA-Public Use
  Company Number: US-AMGEN INC.-USASP2019063495

PATIENT
  Age: 67 Year
  Sex: Female

DRUGS (1)
  1. AIMOVIG [Suspect]
     Active Substance: ERENUMAB-AOOE
     Indication: MIGRAINE
     Dosage: 70 MILLIGRAM
     Route: 065
     Dates: start: 20190317, end: 20190318

REACTIONS (4)
  - Dizziness [Unknown]
  - Vertigo [Unknown]
  - Drug ineffective [Unknown]
  - Intentional product misuse [Unknown]

NARRATIVE: CASE EVENT DATE: 201903
